FAERS Safety Report 12474535 (Version 1)
Quarter: 2016Q2

REPORT INFORMATION
  Report Type: Spontaneous
  Country: US (occurrence: None)
  Receive Date: 20160616
  Receipt Date: 20160616
  Transmission Date: 20160815
  Serious: Yes (Hospitalization)
  Sender: FDA-Public Use
  Company Number: None

PATIENT
  Age: 16 Year
  Sex: Male
  Weight: 63.05 kg

DRUGS (9)
  1. CABOZANTINIB [Suspect]
     Active Substance: CABOZANTINIB
     Route: 048
     Dates: start: 20160419, end: 20160610
  2. CABOZANTINIB [Suspect]
     Active Substance: CABOZANTINIB
     Indication: NEUROFIBROMA
     Route: 048
     Dates: start: 20160223, end: 20160418
  3. CABOZANTINIB [Suspect]
     Active Substance: CABOZANTINIB
  4. ZOFRAN [Concomitant]
     Active Substance: ONDANSETRON HYDROCHLORIDE
  5. AMMONIUM LACTATE. [Concomitant]
     Active Substance: AMMONIUM LACTATE
  6. CONCERTA [Concomitant]
     Active Substance: METHYLPHENIDATE HYDROCHLORIDE
  7. MULTIVITAMIN [Concomitant]
     Active Substance: VITAMINS
  8. DIAZEPAM. [Concomitant]
     Active Substance: DIAZEPAM
  9. CALCIUM 600+D [Concomitant]
     Active Substance: CALCIUM\VITAMIN D

REACTIONS (6)
  - Pain [None]
  - Inflammation [None]
  - Bacterial infection [None]
  - Culture wound positive [None]
  - Abscess [None]
  - Neurofibroma [None]

NARRATIVE: CASE EVENT DATE: 20160610
